FAERS Safety Report 4698170-3 (Version None)
Quarter: 2005Q2

REPORT INFORMATION
  Report Type: 
  Country: None (occurrence: None)
  Receive Date: 20050623
  Receipt Date: 20050614
  Transmission Date: 20051028
  Serious: Yes (Hospitalization)
  Sender: FDA-Public Use
  Company Number: 2005-UK-00956UK

PATIENT
  Sex: Male

DRUGS (2)
  1. COMBIVIR [Suspect]
     Route: 065
  2. VIRAMUNE [Suspect]
     Route: 065

REACTIONS (1)
  - DEEP VEIN THROMBOSIS [None]
